FAERS Safety Report 6611694-4 (Version None)
Quarter: 2010Q1

REPORT INFORMATION
  Report Type: 
  Country: None (occurrence: None)
  Receive Date: 20100226
  Receipt Date: 20100226
  Transmission Date: 20100710
  Serious: Yes (Other)
  Sender: FDA-Public Use
  Company Number: None

PATIENT
  Sex: Female
  Weight: 58.9676 kg

DRUGS (2)
  1. YAZ [Suspect]
     Indication: CONTRACEPTION
     Dosage: 3 MG/0.02 MG DAILY PO
     Route: 048
  2. YAZ [Suspect]
     Indication: ECTROPION OF CERVIX
     Dosage: 3 MG/0.02 MG DAILY PO
     Route: 048

REACTIONS (3)
  - ABDOMINAL PAIN UPPER [None]
  - HEPATIC MASS [None]
  - NAUSEA [None]
